FAERS Safety Report 7607498-6 (Version None)
Quarter: 2011Q3

REPORT INFORMATION
  Report Type: 
  Country: None (occurrence: None)
  Receive Date: 20110713
  Receipt Date: 20110707
  Transmission Date: 20111222
  Serious: Yes (Other)
  Sender: FDA-Public Use
  Company Number: PT-GILEAD-2011-0039778

PATIENT
  Age: 50 Year
  Sex: Female

DRUGS (8)
  1. TRUVADA [Concomitant]
     Indication: HIV INFECTION
     Dates: start: 20041001
  2. VICTAN [Concomitant]
  3. SPIRIVA [Concomitant]
  4. ATRIPLA [Suspect]
     Indication: HIV INFECTION
     Dates: start: 20091001
  5. BECLOTAIDE [Concomitant]
     Route: 055
  6. PAROXETINE HCL [Concomitant]
  7. EFAVIRENZ [Concomitant]
     Indication: HIV INFECTION
     Dates: start: 20041001
  8. ALBUTEROL [Concomitant]
     Route: 055

REACTIONS (4)
  - HEPATIC FUNCTION ABNORMAL [None]
  - ALANINE AMINOTRANSFERASE INCREASED [None]
  - BLOOD ALKALINE PHOSPHATASE INCREASED [None]
  - GAMMA-GLUTAMYLTRANSFERASE INCREASED [None]
